FAERS Safety Report 9601185 (Version 1)
Quarter: 2013Q4

REPORT INFORMATION
  Report Type: Spontaneous
  Country: US (occurrence: US)
  Receive Date: 20131004
  Receipt Date: 20131004
  Transmission Date: 20140711
  Serious: Yes (Death)
  Sender: FDA-Public Use
  Company Number: US-ROCHE-1285328

PATIENT
  Sex: Female

DRUGS (1)
  1. XELODA [Suspect]
     Indication: GALLBLADDER CANCER
     Dosage: 14 DAYS ON
     Route: 048
     Dates: start: 20121019, end: 20130801

REACTIONS (1)
  - Death [Fatal]
